FAERS Safety Report 14120324 (Version 1)
Quarter: 2017Q4

REPORT INFORMATION
  Report Type: Spontaneous
  Country: US (occurrence: US)
  Receive Date: 20171024
  Receipt Date: 20171024
  Transmission Date: 20180321
  Serious: No
  Sender: FDA-Public Use
  Company Number: US-PERRIGO-16US022960

PATIENT
  Age: 66 Year
  Sex: Male
  Weight: 121.9 kg

DRUGS (2)
  1. NICOTINE POLACRILEX [Suspect]
     Active Substance: NICOTINE
     Indication: SMOKING CESSATION THERAPY
     Dosage: 1/2 PIECE TO 4 MG, 3 TO 5 TIMES DAILY
     Route: 002
     Dates: start: 20160305
  2. LOSARTAN. [Concomitant]
     Active Substance: LOSARTAN
     Indication: HYPERTENSION
     Dosage: 100 MG, UNKNOWN
     Route: 048
     Dates: start: 201612

REACTIONS (3)
  - Nicotine dependence [Unknown]
  - Wrong technique in product usage process [Not Recovered/Not Resolved]
  - Hiccups [Recovered/Resolved]

NARRATIVE: CASE EVENT DATE: 201603
